FAERS Safety Report 10173743 (Version 2)
Quarter: 2014Q2

REPORT INFORMATION
  Report Type: Spontaneous
  Country: US (occurrence: US)
  Receive Date: 20140515
  Receipt Date: 20140603
  Transmission Date: 20141212
  Serious: Yes (Other)
  Sender: FDA-Public Use
  Company Number: US-BAYER-2014-070910

PATIENT
  Age: 47 Year
  Sex: Female

DRUGS (1)
  1. CIPRO [Suspect]

REACTIONS (24)
  - Drug hypersensitivity [None]
  - Rheumatoid arthritis [None]
  - Bronchitis [None]
  - Myalgia [None]
  - Myositis [None]
  - Calcium metabolism disorder [None]
  - Polymyositis [None]
  - Malaise [None]
  - Ear pain [None]
  - Cough [None]
  - Ear canal erythema [None]
  - Oedema [None]
  - Pharyngeal erythema [None]
  - Increased upper airway secretion [None]
  - Effusion [None]
  - Nasal congestion [None]
  - Herpes zoster [None]
  - Nervous system disorder [None]
  - Otitis media acute [None]
  - Rhinitis allergic [None]
  - Ear discomfort [None]
  - Productive cough [None]
  - Drug dose omission [None]
  - Dyspnoea [None]
